FAERS Safety Report 11327077 (Version 1)
Quarter: 2015Q3

REPORT INFORMATION
  Report Type: Spontaneous
  Country: JP (occurrence: JP)
  Receive Date: 20150731
  Receipt Date: 20150731
  Transmission Date: 20151125
  Serious: Yes (Hospitalization, Other)
  Sender: FDA-Public Use
  Company Number: PHHY2015JP089667

PATIENT
  Age: 61 Year
  Sex: Female
  Weight: 53 kg

DRUGS (3)
  1. ISOSORBIDE DINITRATE. [Concomitant]
     Active Substance: ISOSORBIDE DINITRATE
     Indication: PRINZMETAL ANGINA
     Route: 065
  2. NIFEDIPINE. [Concomitant]
     Active Substance: NIFEDIPINE
     Indication: HYPERTENSION
     Route: 065
  3. SERTRALINE HYDROCHLORIDE. [Suspect]
     Active Substance: SERTRALINE HYDROCHLORIDE
     Indication: DEPRESSION
     Route: 065

REACTIONS (10)
  - Pyrexia [Recovered/Resolved]
  - Bradycardia [Recovered/Resolved]
  - Electrocardiogram ST segment elevation [Recovered/Resolved]
  - Blood pressure decreased [Recovered/Resolved]
  - Chest discomfort [Recovered/Resolved]
  - Neuroleptic malignant syndrome [Recovered/Resolved]
  - Arteriospasm coronary [Recovered/Resolved]
  - Acidosis [Recovered/Resolved]
  - Sweat gland disorder [Recovered/Resolved]
  - Atrioventricular block [Recovered/Resolved]
